FAERS Safety Report 5247335-0 (Version None)
Quarter: 2007Q1

REPORT INFORMATION
  Report Type: 
  Country: None (occurrence: None)
  Receive Date: 20070223
  Receipt Date: 20070223
  Transmission Date: 20070707
  Serious: Yes (Hospitalization, Other)
  Sender: FDA-Public Use
  Company Number: None

PATIENT
  Age: 47 Year
  Sex: Female
  Weight: 73.4 kg

DRUGS (14)
  1. TREPROSTINIL UNITED THERAPEUTICS [Suspect]
     Indication: PULMONARY HYPERTENSION
     Dosage: 6 NG/KG/MIN CONTINUOUS IV DRIP
     Route: 041
     Dates: start: 20061107, end: 20061117
  2. BOSENTAN [Concomitant]
  3. FUROSEMIDE [Concomitant]
  4. POTASSIUM CHLORIDE [Concomitant]
  5. METOLAZONE [Concomitant]
  6. SIMVASTATIN [Concomitant]
  7. CYCLOBENZAPRINE HCL [Concomitant]
  8. CETIRIZINE HCL [Concomitant]
  9. BUDESONIDE [Concomitant]
  10. LOPERAMIDE HCL [Concomitant]
  11. ASPIRIN [Concomitant]
  12. ENOXAPARIN SODIUM [Concomitant]
  13. METOPROLOL SUCCINATE [Concomitant]
  14. FOLIC ACID [Concomitant]

REACTIONS (3)
  - PLATELET COUNT DECREASED [None]
  - PYREXIA [None]
  - WAIST CIRCUMFERENCE INCREASED [None]
